FAERS Safety Report 4848428-X (Version None)
Quarter: 2005Q4

REPORT INFORMATION
  Report Type: 
  Country: None (occurrence: None)
  Receive Date: 20051208
  Receipt Date: 20051024
  Transmission Date: 20060501
  Serious: Yes (Hospitalization)
  Sender: FDA-Public Use
  Company Number: FR-GLAXOSMITHKLINE-B0398282A

PATIENT
  Age: 80 Year
  Sex: Female

DRUGS (7)
  1. AUGMENTIN [Suspect]
     Indication: WOUND INFECTION
     Route: 048
     Dates: start: 20050802, end: 20050812
  2. CIFLOX [Suspect]
     Indication: WOUND INFECTION
     Route: 048
     Dates: start: 20050802, end: 20050812
  3. KARDEGIC [Concomitant]
     Dosage: 75MG PER DAY
     Route: 048
  4. PHYSIOTENS [Concomitant]
     Dosage: 1UNIT PER DAY
     Route: 048
     Dates: end: 20050810
  5. LASIX [Concomitant]
     Dosage: 2TAB PER DAY
     Route: 048
  6. TRIATEC 5 MG [Concomitant]
     Dosage: 10MG PER DAY
     Route: 048
  7. INSULINE MIXTARD [Concomitant]

REACTIONS (9)
  - ACUTE GENERALISED EXANTHEMATOUS PUSTULOSIS [None]
  - DERMATITIS BULLOUS [None]
  - PRURITUS [None]
  - PYREXIA [None]
  - RENAL FAILURE ACUTE [None]
  - SKIN EXFOLIATION [None]
  - TOXIC SKIN ERUPTION [None]
  - URTICARIA [None]
  - VOMITING [None]
